FAERS Safety Report 7668430-2 (Version None)
Quarter: 2011Q3

REPORT INFORMATION
  Report Type: 
  Country: None (occurrence: None)
  Receive Date: 20110803
  Receipt Date: 20110627
  Transmission Date: 20111222
  Serious: Yes (Other)
  Sender: FDA-Public Use
  Company Number: JPI-P-016025

PATIENT
  Age: 49 Year
  Sex: Female
  Weight: 65.7716 kg

DRUGS (2)
  1. MULTIPLE UNSPECIFIED MEDICATIONS [Concomitant]
  2. XYREM [Suspect]
     Indication: HYPERSOMNIA
     Dosage: 2 IN 1 D,7.5 GM (3.75 GM, 2 IN 1 D) ORAL
     Route: 048
     Dates: start: 20080301

REACTIONS (1)
  - BREAST CANCER FEMALE [None]
